FAERS Safety Report 4979193-3 (Version None)
Quarter: 2006Q2

REPORT INFORMATION
  Report Type: 
  Country: None (occurrence: None)
  Receive Date: 20060421
  Receipt Date: 20060222
  Transmission Date: 20061013
  Serious: Yes (Other)
  Sender: FDA-Public Use
  Company Number: GB-GLAXOSMITHKLINE-B0413182A

PATIENT
  Age: 78 Year
  Sex: Male

DRUGS (10)
  1. AVANDIA [Suspect]
     Indication: DIABETES MELLITUS NON-INSULIN-DEPENDENT
     Dosage: 8MG PER DAY
     Route: 048
     Dates: start: 20060101
  2. METFORMIN [Concomitant]
     Dosage: 500MG THREE TIMES PER DAY
     Route: 048
  3. GLICLAZIDE [Concomitant]
     Dosage: 160MG TWICE PER DAY
     Route: 048
  4. NABUMETONE [Concomitant]
     Dosage: 500MG TWICE PER DAY
     Route: 048
  5. METOPROLOL [Concomitant]
     Dosage: 200MG PER DAY
     Route: 048
  6. ASPIRIN [Concomitant]
     Dosage: 75MG PER DAY
     Route: 048
  7. ATORVASTATIN [Concomitant]
     Dosage: 10MG PER DAY
     Route: 048
  8. FLIXONASE [Concomitant]
     Route: 065
  9. PRO-BANTHINE [Concomitant]
     Dosage: 15MG THREE TIMES PER DAY
     Route: 048
  10. LANSOPRAZOLE [Concomitant]
     Route: 048

REACTIONS (1)
  - VISUAL ACUITY REDUCED [None]
